FAERS Safety Report 10232929 (Version 1)
Quarter: 2014Q2

REPORT INFORMATION
  Report Type: Spontaneous
  Country: SE (occurrence: SE)
  Receive Date: 20140612
  Receipt Date: 20140612
  Transmission Date: 20141212
  Serious: Yes (Other)
  Sender: FDA-Public Use
  Company Number: SE-PFIZER INC-2014156072

PATIENT
  Sex: Male
  Weight: 1.14 kg

DRUGS (10)
  1. CYCLOKAPRON [Suspect]
     Indication: FIBRINOLYSIS
     Dosage: 4 G, UNK
     Route: 064
  2. CYCLOKAPRON [Suspect]
     Dosage: 4 G, DAILY FOR 10 DAYS
     Route: 064
  3. HEPARIN SODIUM [Suspect]
     Dosage: 36000 IU, DAILY
     Route: 064
  4. KABIKINASE [Suspect]
     Indication: PULMONARY EMBOLISM
     Dosage: 10^5 UNITS OVER 30 MIN
     Route: 064
  5. KABIKINASE [Suspect]
     Dosage: 10^5 UNITS/HR
     Route: 064
  6. KABIKINASE [Suspect]
     Dosage: UNK
     Route: 064
  7. HYDROCORTISONE [Suspect]
     Indication: PYREXIA
     Dosage: 100 MG, DAILY
     Route: 064
  8. BETAMETHASONE [Suspect]
     Dosage: 8 MG, DAILY FOR 3 DAYS
     Route: 064
  9. TERBUTALINE [Suspect]
     Indication: UTERINE CONTRACTIONS DURING PREGNANCY
     Dosage: UNK, FOR 5 DAYS
     Route: 064
  10. TERBUTALINE [Suspect]
     Dosage: 15 MG, DAILY
     Route: 064

REACTIONS (3)
  - Maternal exposure during pregnancy [Unknown]
  - Premature baby [Unknown]
  - Apgar score low [Unknown]
